FAERS Safety Report 9405877 (Version 3)
Quarter: 2014Q2

REPORT INFORMATION
  Report Type: Spontaneous
  Country: US (occurrence: US)
  Receive Date: 20130717
  Receipt Date: 20140418
  Transmission Date: 20141212
  Serious: Yes (Hospitalization)
  Sender: FDA-Public Use
  Company Number: US-GLAXOSMITHKLINE-A1033268A

PATIENT
  Age: 71 Year
  Sex: Female

DRUGS (1)
  1. AVANDIA [Suspect]
     Indication: TYPE 2 DIABETES MELLITUS
     Dosage: 4MG PER DAY
     Route: 048
     Dates: start: 200504, end: 20070918

REACTIONS (5)
  - Myocardial infarction [Unknown]
  - Stent placement [Unknown]
  - Cardiac pacemaker insertion [Unknown]
  - Coronary artery disease [Unknown]
  - Electrocardiogram change [Unknown]
